FAERS Safety Report 10038394 (Version 1)
Quarter: 2014Q1

REPORT INFORMATION
  Report Type: Spontaneous
  Country: US (occurrence: None)
  Receive Date: 20140306
  Receipt Date: 20140306
  Transmission Date: 20141002
  Serious: Yes (Other)
  Sender: FDA-Public Use
  Company Number: 163-21880-13073062

PATIENT
  Age: 63 Year
  Sex: Male
  Weight: 81.65 kg

DRUGS (9)
  1. REVLIMID(LENALIDOMIDE)(25 MILLIGRAM, CAPSULES) [Suspect]
     Indication: PLASMA CELL MYELOMA
     Route: 048
     Dates: start: 201210
  2. ALLOPURINOL(ALLOPURINOL) [Concomitant]
  3. DEXAMETHASONE(DEXAMETHASONE) [Concomitant]
  4. DILAUDID(HYDROMORPHONE HYDROCHLORIDE) [Concomitant]
  5. MEGACE(MEGESTROL ACETATE) [Concomitant]
  6. MS CONTIN(MORPHINE SULFATE) [Concomitant]
  7. OMEPRAZOLE(OMEPRAZOLE) [Concomitant]
  8. PROMETHAZINE(PROMETHAZINE) [Concomitant]
  9. WARFARIN(WARFARIN) [Concomitant]

REACTIONS (2)
  - Deep vein thrombosis [None]
  - Neuropathy peripheral [None]
